FAERS Safety Report 8213734-8 (Version None)
Quarter: 2012Q1

REPORT INFORMATION
  Report Type: 
  Country: None (occurrence: None)
  Receive Date: 20120315
  Receipt Date: 20120306
  Transmission Date: 20120608
  Serious: Yes (Other)
  Sender: FDA-Public Use
  Company Number: US-ASTRAZENECA-2012SE15684

PATIENT
  Sex: Male

DRUGS (3)
  1. SEROQUEL [Suspect]
     Route: 048
     Dates: start: 20110801
  2. SEROQUEL [Suspect]
     Route: 048
     Dates: start: 20111124
  3. EIGHT KINDS OF MEDICATIONS [Concomitant]

REACTIONS (2)
  - PNEUMONIA ASPIRATION [None]
  - HALLUCINATION, VISUAL [None]
